FAERS Safety Report 7133050-5 (Version None)
Quarter: 2010Q4

REPORT INFORMATION
  Report Type: 
  Country: None (occurrence: None)
  Receive Date: 20101202
  Receipt Date: 20101122
  Transmission Date: 20110411
  Serious: Yes (Congenital Anomaly)
  Sender: FDA-Public Use
  Company Number: A0897186A

PATIENT
  Sex: Female

DRUGS (10)
  1. PAXIL [Suspect]
     Indication: ANXIETY
     Dosage: 20MG PER DAY
     Dates: start: 19981207
  2. WELLBUTRIN SR [Concomitant]
     Dates: start: 19990603
  3. VISTARIL [Concomitant]
     Dates: start: 19990927
  4. ATARAX [Concomitant]
     Dates: start: 19991001
  5. NORVASC [Concomitant]
     Dates: end: 19990526
  6. AMOXIL [Concomitant]
     Dates: start: 19990503
  7. CELESTON [Concomitant]
     Dates: start: 19990503
  8. ANCEF [Concomitant]
     Dates: start: 19990503
  9. ULTRAM [Concomitant]
     Dates: start: 19990501
  10. SOMA [Concomitant]

REACTIONS (3)
  - CONGENITAL AORTIC ANOMALY [None]
  - DRUG EXPOSURE DURING PREGNANCY [None]
  - SUBVALVULAR AORTIC STENOSIS [None]
